FAERS Safety Report 4290426-1 (Version None)
Quarter: 2004Q1

REPORT INFORMATION
  Report Type: 
  Country: None (occurrence: None)
  Receive Date: 20040209
  Receipt Date: 20040123
  Transmission Date: 20041129
  Serious: Yes (Hospitalization)
  Sender: FDA-Public Use
  Company Number: DSA_23939_2004

PATIENT
  Age: 82 Year
  Sex: Female

DRUGS (4)
  1. DILTIAZEM [Suspect]
     Indication: HYPERTENSION
     Dosage: 60 MG Q DAY PO
     Route: 048
     Dates: start: 19930101, end: 20031030
  2. TEGRETOL [Suspect]
     Indication: FACIAL NEURALGIA
     Dosage: 2 Q DAY PO
     Route: 048
     Dates: start: 19890101, end: 20031117
  3. STABLON [Concomitant]
  4. CAT REPELLENT [Concomitant]

REACTIONS (1)
  - DRUG ERUPTION [None]
